FAERS Safety Report 6078260-3 (Version None)
Quarter: 2009Q1

REPORT INFORMATION
  Report Type: 
  Country: None (occurrence: None)
  Receive Date: 20090213
  Receipt Date: 20090202
  Transmission Date: 20090719
  Serious: Yes (Other)
  Sender: FDA-Public Use
  Company Number: CN-PFIZER INC-2009168046

PATIENT

DRUGS (1)
  1. MEDROL [Suspect]
     Indication: NEPHRITIS
     Dosage: 32 MG, 1X/DAY
     Route: 048
     Dates: start: 20081107, end: 20081208

REACTIONS (1)
  - PREGNANCY INDUCED HYPERTENSION [None]
